FAERS Safety Report 21257570 (Version 3)
Quarter: 2022Q4

REPORT INFORMATION
  Report Type: Spontaneous
  Country: US (occurrence: US)
  Receive Date: 20220826
  Receipt Date: 20221007
  Transmission Date: 20230112
  Serious: No
  Sender: FDA-Public Use
  Company Number: US-BEH-2022148920

PATIENT
  Sex: Male

DRUGS (1)
  1. HAEGARDA [Suspect]
     Active Substance: HUMAN C1-ESTERASE INHIBITOR
     Dosage: UNK
     Route: 065

REACTIONS (8)
  - Pain [Unknown]
  - Product storage error [Unknown]
  - Product use complaint [Unknown]
  - Incorrect product administration duration [Unknown]
  - Product solubility abnormal [Unknown]
  - Product physical issue [Unknown]
  - Device issue [Unknown]
  - Product preparation issue [Unknown]
